FAERS Safety Report 16672079 (Version 1)
Quarter: 2019Q3

REPORT INFORMATION
  Report Type: Spontaneous
  Country: US (occurrence: US)
  Receive Date: 20190806
  Receipt Date: 20190806
  Transmission Date: 20191004
  Serious: Yes (Other)
  Sender: FDA-Public Use
  Company Number: US-TEVA-2019-US-1087253

PATIENT
  Age: 40 Year
  Sex: Female

DRUGS (1)
  1. FLUOCINONIDE. [Suspect]
     Active Substance: FLUOCINONIDE
     Indication: MUCOSAL INFLAMMATION
     Dosage: (TOPICAL ORAL GEL TWICE DAILY)
     Route: 061

REACTIONS (1)
  - Chorioretinopathy [Recovered/Resolved]
